FAERS Safety Report 12294568 (Version 1)
Quarter: 2016Q2

REPORT INFORMATION
  Report Type: Spontaneous
  Country: US (occurrence: US)
  Receive Date: 20160422
  Receipt Date: 20160422
  Transmission Date: 20160815
  Serious: No
  Sender: FDA-Public Use
  Company Number: US-DRREDDYS-USA/USA/16/0077355

PATIENT
  Sex: Male

DRUGS (2)
  1. ZENATANE [Suspect]
     Active Substance: ISOTRETINOIN
     Indication: PRODUCT USED FOR UNKNOWN INDICATION
     Route: 048
  2. ZENATANE [Suspect]
     Active Substance: ISOTRETINOIN
     Route: 048

REACTIONS (2)
  - Incorrect dose administered [Unknown]
  - No adverse event [Unknown]
